FAERS Safety Report 10529073 (Version 2)
Quarter: 2015Q3

REPORT INFORMATION
  Report Type: Report from Study
  Country: US (occurrence: US)
  Receive Date: 20141020
  Receipt Date: 20150928
  Transmission Date: 20151125
  Serious: Yes (Hospitalization)
  Sender: FDA-Public Use
  Company Number: US-ACTELION-A-US2014-106652

PATIENT
  Age: 51 Year
  Sex: Female

DRUGS (1)
  1. TRACLEER [Suspect]
     Active Substance: BOSENTAN
     Indication: PULMONARY ARTERIAL HYPERTENSION
     Dosage: UNK
     Route: 048
     Dates: start: 20091223

REACTIONS (10)
  - Headache [Unknown]
  - Thrombosis [Unknown]
  - Drug ineffective [Unknown]
  - Presyncope [Unknown]
  - Vision blurred [Unknown]
  - Pulmonary hypertension [Unknown]
  - Dizziness [Unknown]
  - Cardiac disorder [Unknown]
  - Sleep disorder [Unknown]
  - Asthenia [Unknown]

NARRATIVE: CASE EVENT DATE: 20141006
